FAERS Safety Report 5990084-1 (Version None)
Quarter: 2008Q4

REPORT INFORMATION
  Report Type: 
  Country: None (occurrence: None)
  Receive Date: 20081211
  Receipt Date: 20081209
  Transmission Date: 20090506
  Serious: Yes (Hospitalization)
  Sender: FDA-Public Use
  Company Number: US-BRISTOL-MYERS SQUIBB COMPANY-14393706

PATIENT
  Age: 71 Year
  Sex: Male

DRUGS (11)
  1. COUMADIN [Suspect]
     Dosage: 1 DOSAGEFORM = 5MG/D AND 7.5 MG EVERY THURSDAY
  2. PLAVIX [Suspect]
     Indication: STENT PLACEMENT
     Route: 048
     Dates: start: 20030801
  3. LOVENOX [Suspect]
     Indication: ANTICOAGULANT THERAPY
     Dosage: 1 DOSAGE FORM=5MG QD;7.5MG EVERY THURSDAY.
  4. METOPROLOL [Concomitant]
     Route: 048
  5. NIACIN [Concomitant]
     Route: 065
  6. PROPOXYPHENE HYDROCHLORIDE [Concomitant]
     Dosage: 65 MG TID PRN
     Route: 065
  7. VIOXX [Concomitant]
     Route: 048
  8. ULTRAM [Concomitant]
     Route: 065
  9. CANDESARTAN CILEXETIL + HCTZ [Concomitant]
     Dosage: 1 DOSAGEFORM = 16/12.5 MG
     Route: 048
  10. XALATAN [Concomitant]
     Dosage: XALATAN EYEDROPS
     Route: 031
  11. MULTI-VITAMINS [Concomitant]
     Route: 065

REACTIONS (7)
  - CATHETER SITE HAEMATOMA [None]
  - CONTUSION [None]
  - DEEP VEIN THROMBOSIS [None]
  - DYSPNOEA EXERTIONAL [None]
  - OEDEMA PERIPHERAL [None]
  - PAIN [None]
  - SWELLING [None]
